FAERS Safety Report 11581258 (Version 1)
Quarter: 2015Q4

REPORT INFORMATION
  Report Type: Spontaneous
  Country: CA (occurrence: CA)
  Receive Date: 20151001
  Receipt Date: 20151001
  Transmission Date: 20160304
  Serious: Yes (Death)
  Sender: FDA-Public Use
  Company Number: CA-HOSPIRA-3018235

PATIENT
  Age: 31 Year
  Sex: Female

DRUGS (5)
  1. ETHANOL [Suspect]
     Active Substance: ALCOHOL
     Indication: PRODUCT USED FOR UNKNOWN INDICATION
     Route: 048
  2. MORPHINE SULPHATE [Suspect]
     Active Substance: MORPHINE SULFATE
     Indication: PAIN
     Route: 065
  3. ACETAMINOPHEN. [Suspect]
     Active Substance: ACETAMINOPHEN
     Indication: DENTAL DISCOMFORT
     Route: 065
  4. IBUPROFEN. [Suspect]
     Active Substance: IBUPROFEN
     Indication: DENTAL DISCOMFORT
     Route: 065
  5. ANTI-NAUSEA                        /00013304/ [Suspect]
     Active Substance: PROCHLORPERAZINE MALEATE
     Indication: NAUSEA
     Route: 065

REACTIONS (9)
  - Shock [Fatal]
  - Heart rate decreased [Fatal]
  - Pain [Fatal]
  - Disorientation [Fatal]
  - Multi-organ failure [Fatal]
  - Depressed level of consciousness [Fatal]
  - Hepatic failure [Fatal]
  - Respiratory rate decreased [Fatal]
  - Drug ineffective [Fatal]
